FAERS Safety Report 5072349-3 (Version None)
Quarter: 2006Q3

REPORT INFORMATION
  Report Type: 
  Country: None (occurrence: None)
  Receive Date: 20060807
  Receipt Date: 20060731
  Transmission Date: 20061208
  Serious: Yes (Hospitalization)
  Sender: FDA-Public Use
  Company Number: GB-AVENTIS-200618079GDDC

PATIENT
  Sex: Male

DRUGS (2)
  1. LANTUS [Suspect]
  2. OPTIPEN (INSULIN PUMP) [Suspect]

REACTIONS (2)
  - KNEE ARTHROPLASTY [None]
  - PHARMACEUTICAL PRODUCT COMPLAINT [None]
